FAERS Safety Report 23223455 (Version 2)
Quarter: 2024Q1

REPORT INFORMATION
  Report Type: Report from Study
  Country: US (occurrence: US)
  Receive Date: 20231123
  Receipt Date: 20240124
  Transmission Date: 20240410
  Serious: No
  Sender: FDA-Public Use
  Company Number: US-002147023-NVSC2023US249333

PATIENT
  Age: 40 Year
  Sex: Female

DRUGS (4)
  1. ENTRESTO [Suspect]
     Active Substance: SACUBITRIL\VALSARTAN
     Indication: Cardiac failure
     Dosage: 24 MG, BID
     Route: 048
     Dates: start: 202307
  2. ENTRESTO [Suspect]
     Active Substance: SACUBITRIL\VALSARTAN
     Dosage: 49.51 MG, BID
     Route: 048
  3. FUROSEMIDE [Suspect]
     Active Substance: FUROSEMIDE
     Indication: Product used for unknown indication
     Dosage: UNK
     Route: 065
  4. SPIRONOLACTONE [Suspect]
     Active Substance: SPIRONOLACTONE
     Indication: Product used for unknown indication
     Dosage: UNK
     Route: 065

REACTIONS (10)
  - Taste disorder [Unknown]
  - Brain fog [Unknown]
  - Alopecia [Unknown]
  - Weight decreased [Unknown]
  - Memory impairment [Unknown]
  - Nocturia [Unknown]
  - Echocardiogram abnormal [Recovering/Resolving]
  - Heart rate increased [Unknown]
  - Rhinorrhoea [Unknown]
  - Illness [Unknown]

NARRATIVE: CASE EVENT DATE: 20231113
